FAERS Safety Report 13273428 (Version 2)
Quarter: 2017Q1

REPORT INFORMATION
  Report Type: Report from Study
  Country: US (occurrence: US)
  Receive Date: 20170227
  Receipt Date: 20170321
  Transmission Date: 20170428
  Serious: Yes (Hospitalization)
  Sender: FDA-Public Use
  Company Number: US-UCBSA-2017006957

PATIENT

DRUGS (2)
  1. OXCARBAZEPINE. [Concomitant]
     Active Substance: OXCARBAZEPINE
     Indication: PRODUCT USED FOR UNKNOWN INDICATION
     Dosage: UNK
  2. LACOSAMIDE. [Suspect]
     Active Substance: LACOSAMIDE
     Indication: PRODUCT USED FOR UNKNOWN INDICATION
     Dosage: 100 MG, 2X/DAY (BID)

REACTIONS (6)
  - Dyspnoea [Unknown]
  - Seizure [Not Recovered/Not Resolved]
  - Drug ineffective [Unknown]
  - Chest discomfort [Unknown]
  - Oedema [Not Recovered/Not Resolved]
  - Eye colour change [Unknown]
